FAERS Safety Report 16142073 (Version 2)
Quarter: 2019Q4

REPORT INFORMATION
  Report Type: Spontaneous
  Country: US (occurrence: US)
  Receive Date: 20190401
  Receipt Date: 20191002
  Transmission Date: 20200122
  Serious: No
  Sender: FDA-Public Use
  Company Number: US-SA-2019SA082088

PATIENT
  Age: 48 Year
  Sex: Female
  Weight: 105.22 kg

DRUGS (17)
  1. PROVIGIL [CHORIONIC GONADOTROPHIN] [Concomitant]
     Active Substance: GONADOTROPHIN, CHORIONIC
  2. TRAZODONE HYDROCHLORIDE. [Concomitant]
     Active Substance: TRAZODONE HYDROCHLORIDE
  3. LYSINE [Concomitant]
     Active Substance: LYSINE
  4. FLOMAX [Concomitant]
     Active Substance: TAMSULOSIN HYDROCHLORIDE
  5. SYNALAR [Concomitant]
     Active Substance: FLUOCINOLONE ACETONIDE
  6. VITAMIN D3 [Concomitant]
     Active Substance: CHOLECALCIFEROL
  7. EFFEXOR XR [Concomitant]
     Active Substance: VENLAFAXINE HYDROCHLORIDE
  8. CYCLOBENZAPRINE HYDROCHLORIDE. [Concomitant]
     Active Substance: CYCLOBENZAPRINE HYDROCHLORIDE
  9. SIMVASTATIN. [Concomitant]
     Active Substance: SIMVASTATIN
  10. RAMIPRIL. [Concomitant]
     Active Substance: RAMIPRIL
  11. VITAMIN C [Concomitant]
     Active Substance: ASCORBIC ACID
  12. IRON [Concomitant]
     Active Substance: IRON
  13. METFORMIN HYDROCHLORIDE. [Concomitant]
     Active Substance: METFORMIN HYDROCHLORIDE
  14. AUBAGIO [Suspect]
     Active Substance: TERIFLUNOMIDE
     Indication: MULTIPLE SCLEROSIS
     Dosage: 14 MG, QD
     Route: 048
     Dates: start: 20181031
  15. FLONASE [Concomitant]
     Active Substance: FLUTICASONE PROPIONATE
  16. WELLBUTRIN [Concomitant]
     Active Substance: BUPROPION HYDROCHLORIDE
  17. TRAMADOL HYDROCHLORIDE. [Concomitant]
     Active Substance: TRAMADOL HYDROCHLORIDE

REACTIONS (4)
  - Alopecia [Unknown]
  - Depression [Unknown]
  - Anhedonia [Unknown]
  - Post-traumatic stress disorder [Unknown]
